FAERS Safety Report 24990721 (Version 3)
Quarter: 2025Q1

REPORT INFORMATION
  Report Type: Report from Study
  Country: CN (occurrence: CN)
  Receive Date: 20250220
  Receipt Date: 20250324
  Transmission Date: 20250409
  Serious: Yes (Hospitalization)
  Sender: EISAI
  Company Number: CN-Eisai-EC-2025-184352

PATIENT
  Age: 63 Year
  Sex: Female
  Weight: 72 kg

DRUGS (9)
  1. ERIBULIN [Suspect]
     Active Substance: ERIBULIN
     Indication: Breast cancer
     Dates: start: 20241122, end: 20241129
  2. ERIBULIN [Suspect]
     Active Substance: ERIBULIN
     Dates: start: 20241213, end: 20250110
  3. ERIBULIN [Suspect]
     Active Substance: ERIBULIN
     Dates: start: 20250124, end: 20250124
  4. CAPECITABINE [Suspect]
     Active Substance: CAPECITABINE
     Indication: Breast cancer
     Dosage: 1.0 G AM+1.5 G PM
     Dates: start: 20241213, end: 20241226
  5. CAPECITABINE [Suspect]
     Active Substance: CAPECITABINE
     Dates: start: 20250103, end: 20250206
  6. CAPECITABINE [Suspect]
     Active Substance: CAPECITABINE
     Dates: start: 20241122, end: 20241205
  7. METOCLOPRAMIDE [Concomitant]
     Active Substance: METOCLOPRAMIDE
     Indication: Nausea
     Dosage: 1 TABLET
     Dates: start: 20241126
  8. OXYCODONE HYDROCHLORIDE [Concomitant]
     Active Substance: OXYCODONE HYDROCHLORIDE
     Indication: Axillary pain
  9. METHYLCOBALAMIN [Concomitant]
     Active Substance: METHYLCOBALAMIN
     Indication: Hypoaesthesia
     Dosage: 1 TABLET
     Dates: start: 20250210

REACTIONS (1)
  - Hypoaesthesia [Recovering/Resolving]

NARRATIVE: CASE EVENT DATE: 20250215
